FAERS Safety Report 9452558 (Version 1)
Quarter: 2013Q3

REPORT INFORMATION
  Report Type: Spontaneous
  Country: US (occurrence: US)
  Receive Date: 20130812
  Receipt Date: 20130812
  Transmission Date: 20140515
  Serious: No
  Sender: FDA-Public Use
  Company Number: US-PFIZER INC-2013230216

PATIENT
  Age: 48 Year
  Sex: Female
  Weight: 71 kg

DRUGS (6)
  1. XELJANZ [Suspect]
     Indication: IMMUNE SYSTEM DISORDER
     Dosage: 5 MG, 2X/DAY
     Dates: start: 201307, end: 20130806
  2. IMODIUM [Suspect]
     Indication: DIARRHOEA
     Dosage: 2 MG, 4X/DAY
     Dates: start: 20130804
  3. PERCOCET [Concomitant]
     Indication: PAIN
     Dosage: (OXYCODONE 10MG/ ACETAMINOPHEN325 MG), 2X/DAY
  4. MS-CONTIN [Concomitant]
     Indication: PAIN
     Dosage: 60 MG, 2X/DAY
  5. METHOTREXATE [Concomitant]
     Dosage: 5 MG, 2X/WEEK
  6. FOLIC ACID [Concomitant]
     Dosage: UNK, 4X/WEEK

REACTIONS (4)
  - Headache [Not Recovered/Not Resolved]
  - Diarrhoea [Not Recovered/Not Resolved]
  - Drug ineffective [Unknown]
  - Off label use [Unknown]
